FAERS Safety Report 18487645 (Version 1)
Quarter: 2020Q4

REPORT INFORMATION
  Report Type: Report from Study
  Country: US (occurrence: US)
  Receive Date: 20201111
  Receipt Date: 20201111
  Transmission Date: 20210114
  Serious: Yes (Other)
  Sender: FDA-Public Use
  Company Number: US-EMD SERONO-9197392

PATIENT
  Age: 37 Year
  Sex: Female

DRUGS (1)
  1. GONAL-F [Suspect]
     Active Substance: FOLLITROPIN
     Indication: ARTIFICIAL INSEMINATION

REACTIONS (2)
  - Abortion spontaneous [Unknown]
  - Treatment failure [Unknown]

NARRATIVE: CASE EVENT DATE: 2020
